FAERS Safety Report 8227253-6 (Version None)
Quarter: 2012Q1

REPORT INFORMATION
  Report Type: 
  Country: None (occurrence: None)
  Receive Date: 20120322
  Receipt Date: 20120305
  Transmission Date: 20120608
  Serious: Yes (Hospitalization)
  Sender: FDA-Public Use
  Company Number: US-AMGEN-USASP2012014656

PATIENT
  Age: 36 Year
  Sex: Female

DRUGS (2)
  1. ENBREL [Suspect]
     Indication: ANKYLOSING SPONDYLITIS
     Dosage: 50 MG, QWK
     Dates: start: 20110201
  2. ENBREL [Suspect]
     Indication: PSORIASIS

REACTIONS (4)
  - UTERINE MASS [None]
  - NASOPHARYNGITIS [None]
  - ANKYLOSING SPONDYLITIS [None]
  - PSORIASIS [None]
